FAERS Safety Report 18505474 (Version 1)
Quarter: 2020Q4

REPORT INFORMATION
  Report Type: Spontaneous
  Country: DE (occurrence: DE)
  Receive Date: 20201116
  Receipt Date: 20201116
  Transmission Date: 20210114
  Serious: Yes (Hospitalization)
  Sender: FDA-Public Use
  Company Number: DE-TEVA-2020-DE-1848031

PATIENT
  Age: 81 Year
  Sex: Male

DRUGS (9)
  1. EZETIMIB [Concomitant]
     Active Substance: EZETIMIBE
     Dosage: 10 MILLIGRAM DAILY;  1-0-0-0
  2. ATORVASTATIN [Concomitant]
     Active Substance: ATORVASTATIN
     Dosage: 40 MILLIGRAM DAILY; 0-0-1-0
  3. HYDROCHLOROTHIAZID [Suspect]
     Active Substance: HYDROCHLOROTHIAZIDE
     Dosage: 25 MILLIGRAM DAILY; 1-0-0-0
  4. ACETYLSALICYLSAEURE [Concomitant]
     Active Substance: ASPIRIN
     Dosage: 100 MILLIGRAM DAILY; 0-1-0-0
  5. TIAPRID 100 - 1A PHARMA [Concomitant]
     Dosage: 200 MILLIGRAM DAILY; 1-0-1-0
  6. METOPROLOL. [Concomitant]
     Active Substance: METOPROLOL
     Dosage: 23.75 MILLIGRAM DAILY;  0-0-1-0
  7. RAMIPRIL. [Suspect]
     Active Substance: RAMIPRIL
     Dosage: 5 MILLIGRAM DAILY; 0-0-1-0
  8. TICAGRELOR. [Concomitant]
     Active Substance: TICAGRELOR
     Dosage: 180 MILLIGRAM DAILY; 1-0-1-0
  9. TAMSULOSIN [Concomitant]
     Active Substance: TAMSULOSIN
     Dosage: .4 MILLIGRAM DAILY; 0-0-1-0

REACTIONS (4)
  - Condition aggravated [Unknown]
  - Angina pectoris [Unknown]
  - Hypertension [Unknown]
  - Product administration error [Unknown]
